FAERS Safety Report 7389402-1 (Version None)
Quarter: 2011Q2

REPORT INFORMATION
  Report Type: 
  Country: None (occurrence: None)
  Receive Date: 20110401
  Receipt Date: 20110323
  Transmission Date: 20111010
  Serious: Yes (Other)
  Sender: FDA-Public Use
  Company Number: PHHY2011ES19562

PATIENT
  Age: 63 Year
  Sex: Male

DRUGS (4)
  1. MIRTAZAPINE [Suspect]
     Indication: DEPRESSION
     Dosage: 15 MG/DAY
  2. IRBESARTAN [Concomitant]
     Dosage: 150 MG/DAY
  3. DULOXETINE [Concomitant]
     Indication: DEPRESSION
     Dosage: 120 MG/DAY
  4. TRAMADOL [Concomitant]
     Dosage: 100 MG/DAY

REACTIONS (5)
  - ASTHENIA [None]
  - HEPATIC ENZYME INCREASED [None]
  - WEIGHT DECREASED [None]
  - HEPATOTOXICITY [None]
  - DECREASED APPETITE [None]
